FAERS Safety Report 8145091-X (Version None)
Quarter: 2012Q1

REPORT INFORMATION
  Report Type: 
  Country: None (occurrence: None)
  Receive Date: 20120217
  Receipt Date: 20120213
  Transmission Date: 20120608
  Serious: Yes (Hospitalization)
  Sender: FDA-Public Use
  Company Number: PHEH2012US002159

PATIENT
  Sex: Female

DRUGS (14)
  1. CENTRUM [Concomitant]
     Dosage: 1 DF, QD
     Route: 048
     Dates: start: 20070101
  2. LASIX [Concomitant]
     Indication: HYPERTENSION
     Dosage: 40 MG, UNK
     Route: 048
     Dates: start: 20110212
  3. CORTAB [Concomitant]
     Indication: PAIN
     Dosage: 1 DF, Q8H
     Route: 048
     Dates: start: 20110801
  4. LYRICA [Concomitant]
     Indication: DEPRESSION
     Dosage: 1 DF, BID
     Route: 048
     Dates: start: 20070101
  5. VITAMIN D [Concomitant]
     Dosage: 1 DF, QW
     Route: 048
     Dates: start: 20120120
  6. ALLEGRA [Concomitant]
     Indication: HYPERSENSITIVITY
     Dosage: 1 DF, QD
     Route: 048
     Dates: start: 20111202
  7. JANUVIA [Concomitant]
     Indication: DIABETES MELLITUS
     Dosage: 1 DF, QD
     Route: 048
     Dates: start: 20111202
  8. RECLAST [Suspect]
     Indication: OSTEOPOROSIS
     Dosage: 5 MG, ONCE YEARLY
     Route: 042
     Dates: start: 20111227
  9. FIORICET [Concomitant]
     Indication: MIGRAINE
     Dosage: 1 TO 2, Q6H
     Route: 048
     Dates: start: 20111202
  10. POTASSIUM CHLORIDE [Concomitant]
     Indication: HYPERTENSION
     Dosage: 1 DF, QD
     Dates: start: 20111202
  11. CITRACAL [Concomitant]
     Dosage: 2 DF, BID
     Route: 048
     Dates: start: 20120120
  12. LOPRESSOR [Concomitant]
     Indication: HYPERTENSION
     Dosage: 1 DF, BID
     Route: 048
     Dates: start: 20111202
  13. SYNTHROID [Concomitant]
     Dosage: 1 DF, QD
     Route: 048
     Dates: start: 20111202
  14. LEXAPRO [Concomitant]
     Indication: DEPRESSION
     Dosage: 0.5 DF, QD
     Route: 048
     Dates: start: 20110829

REACTIONS (4)
  - HYPOCALCAEMIA [None]
  - RHABDOMYOLYSIS [None]
  - FATIGUE [None]
  - PAIN [None]
